FAERS Safety Report 10250395 (Version 1)
Quarter: 2014Q2

REPORT INFORMATION
  Report Type: Spontaneous
  Country: US (occurrence: US)
  Receive Date: 20140620
  Receipt Date: 20140620
  Transmission Date: 20141212
  Serious: No
  Sender: FDA-Public Use
  Company Number: US-ASTRAZENECA-2014SE40720

PATIENT
  Age: 73 Year
  Sex: Female
  Weight: 63.5 kg

DRUGS (4)
  1. SYMBICORT [Suspect]
     Indication: ASTHMA
     Dosage: 160/4.5 MCG, ONE PUFF TWO TIMES A DAY
     Route: 055
     Dates: start: 201403, end: 2014
  2. SYMBICORT [Suspect]
     Indication: ASTHMA
     Dosage: 160/4.5 MCG, ONE TO TWO PUFFS TWO TIMES A DAY
     Route: 055
     Dates: start: 20140530
  3. BASIC VITAMINS [Concomitant]
  4. HERBS [Concomitant]

REACTIONS (7)
  - Asthma [Not Recovered/Not Resolved]
  - Abasia [Not Recovered/Not Resolved]
  - Dyspnoea [Not Recovered/Not Resolved]
  - Seasonal allergy [Unknown]
  - Adverse event [Not Recovered/Not Resolved]
  - Off label use [Not Recovered/Not Resolved]
  - Intentional product misuse [Not Recovered/Not Resolved]
